FAERS Safety Report 6972450-0 (Version None)
Quarter: 2010Q3

REPORT INFORMATION
  Report Type: 
  Country: None (occurrence: None)
  Receive Date: 20100909
  Receipt Date: 20100906
  Transmission Date: 20110219
  Serious: Yes (Life-Threatening, Other)
  Sender: FDA-Public Use
  Company Number: PHHY2010DE34748

PATIENT
  Sex: Female

DRUGS (1)
  1. CYCLOSPORINE [Suspect]
     Indication: ECZEMA
     Dosage: 200 MG/DAY
     Dates: start: 20091215, end: 20100124

REACTIONS (1)
  - MALIGNANT MELANOMA [None]
